FAERS Safety Report 5656960-4 (Version None)
Quarter: 2008Q1

REPORT INFORMATION
  Report Type: 
  Country: None (occurrence: None)
  Receive Date: 20080310
  Receipt Date: 20080229
  Transmission Date: 20080703
  Serious: Yes (Hospitalization)
  Sender: FDA-Public Use
  Company Number: A0714126A

PATIENT
  Age: 93 Year
  Sex: Female

DRUGS (1)
  1. ALTABAX [Suspect]
     Indication: WOUND INFECTION
     Route: 061

REACTIONS (1)
  - RASH [None]
